FAERS Safety Report 5761691-6 (Version None)
Quarter: 2008Q2

REPORT INFORMATION
  Report Type: 
  Country: None (occurrence: None)
  Receive Date: 20080606
  Receipt Date: 20080527
  Transmission Date: 20081010
  Serious: No
  Sender: FDA-Public Use
  Company Number: FR-PFIZER INC-2008015830

PATIENT
  Sex: Male
  Weight: 90 kg

DRUGS (4)
  1. CHANTIX [Suspect]
     Dates: start: 20071202, end: 20080128
  2. METOPROLOL TARTRATE [Concomitant]
  3. TAREG [Concomitant]
     Route: 048
  4. METFORMIN HCL [Concomitant]

REACTIONS (8)
  - DEPRESSED MOOD [None]
  - DISORIENTATION [None]
  - FEELING ABNORMAL [None]
  - HYPOKINESIA [None]
  - INSOMNIA [None]
  - MENTAL IMPAIRMENT [None]
  - PRURITUS [None]
  - SLEEP DISORDER [None]
